FAERS Safety Report 4939761-1 (Version None)
Quarter: 2006Q1

REPORT INFORMATION
  Report Type: 
  Country: None (occurrence: None)
  Receive Date: 20060310
  Receipt Date: 20060227
  Transmission Date: 20060701
  Serious: Yes (Hospitalization)
  Sender: FDA-Public Use
  Company Number: US-MERCK-0602USA05946

PATIENT
  Age: 52 Year
  Sex: Female
  Weight: 61 kg

DRUGS (11)
  1. MORPHINE SULFATE [Concomitant]
     Route: 065
  2. CLONAZEPAM [Concomitant]
     Route: 065
  3. [THERAPY UNSPECIFIED] [Concomitant]
     Route: 065
  4. VIOXX [Suspect]
     Indication: SHOULDER PAIN
     Route: 065
     Dates: start: 20000901, end: 20040901
  5. VIOXX [Suspect]
     Indication: CARPAL TUNNEL SYNDROME
     Route: 065
     Dates: start: 20000901, end: 20040901
  6. ZANTAC [Concomitant]
     Route: 065
  7. TRAZODONE HYDROCHLORIDE [Concomitant]
     Route: 065
  8. SUCRALFATE [Concomitant]
     Route: 065
  9. CELEXA [Concomitant]
     Route: 065
  10. SENOKOT [Concomitant]
     Route: 065
  11. NEURONTIN [Concomitant]
     Route: 065

REACTIONS (4)
  - ABDOMINAL MASS [None]
  - RENAL CELL CARCINOMA STAGE UNSPECIFIED [None]
  - RENAL DISORDER [None]
  - RENAL INJURY [None]
